FAERS Safety Report 16927650 (Version 11)
Quarter: 2020Q2

REPORT INFORMATION
  Report Type: Report from Study
  Country: US (occurrence: US)
  Receive Date: 20191016
  Receipt Date: 20200508
  Transmission Date: 20200713
  Serious: Yes (Hospitalization, Other)
  Sender: FDA-Public Use
  Company Number: PHHY2019US025392

PATIENT
  Age: 21 Year
  Sex: Female
  Weight: 59 kg

DRUGS (37)
  1. LAMPRENE [Suspect]
     Active Substance: CLOFAZIMINE
     Indication: MYCOBACTERIUM ABSCESSUS INFECTION
  2. ZITHROMAX [Concomitant]
     Active Substance: AZITHROMYCIN DIHYDRATE
     Indication: CYSTIC FIBROSIS
  3. PULMOZYME [Concomitant]
     Active Substance: DORNASE ALFA
     Indication: CYSTIC FIBROSIS
     Dosage: 2.5 MG, QD
     Route: 055
     Dates: start: 20180927
  4. FERROUS SULFATE. [Concomitant]
     Active Substance: FERROUS SULFATE
     Indication: MALABSORPTION
     Dosage: 1 DF, QD, WITH BREAKFAST
     Route: 048
     Dates: start: 20180927
  5. SINUS RINSE [Concomitant]
     Active Substance: SODIUM BICARBONATE\SODIUM CHLORIDE
     Indication: SINUS DISORDER
     Dosage: 1-2 DF, QD
     Route: 045
  6. MUPIROCIN. [Suspect]
     Active Substance: MUPIROCIN
     Dosage: 1 DF, QD (0.94 GM IN 125 ML)
     Route: 045
     Dates: start: 201907
  7. AMIKACIN. [Suspect]
     Active Substance: AMIKACIN
     Dosage: UNK
     Route: 065
  8. DOXYCYCLINE. [Concomitant]
     Active Substance: DOXYCYCLINE
     Indication: PRODUCT USED FOR UNKNOWN INDICATION
     Dosage: 100 MG, Q12H
     Route: 042
  9. MUPIROCIN. [Suspect]
     Active Substance: MUPIROCIN
     Indication: SINUS DISORDER
     Dosage: 125 ML (EACH NOSTRIL), BID (7.5/1 G/L)
     Route: 045
     Dates: start: 20190212, end: 20190310
  10. ALBUTEROL. [Concomitant]
     Active Substance: ALBUTEROL
     Indication: ASTHMA
     Dosage: 2 DF, QID
     Route: 055
     Dates: start: 20180609
  11. LEXAPRO [Concomitant]
     Active Substance: ESCITALOPRAM OXALATE
     Indication: ANXIETY
     Dosage: UNK
     Route: 065
     Dates: start: 20190313
  12. PROTONIX [Concomitant]
     Active Substance: PANTOPRAZOLE SODIUM
     Indication: GASTROOESOPHAGEAL REFLUX DISEASE
     Dosage: 1 DF, QD
     Route: 048
     Dates: start: 20180906
  13. LEVAQUIN [Concomitant]
     Active Substance: LEVOFLOXACIN
     Indication: CONDITION AGGRAVATED
  14. VITAMIIN C [Concomitant]
     Active Substance: ASCORBIC ACID
     Indication: SUPPLEMENTATION THERAPY
     Dosage: 1000 MG, QD
     Route: 048
     Dates: start: 20200109
  15. AMIKACIN;SODIUM CHLORIDE [Concomitant]
     Dosage: UNK
     Route: 065
     Dates: start: 20200501
  16. LEXAPRO [Concomitant]
     Active Substance: ESCITALOPRAM OXALATE
     Indication: DEPRESSION
     Dosage: 0.5 DF, QD
     Route: 048
     Dates: start: 20181231, end: 20190102
  17. FLONASE [Concomitant]
     Active Substance: FLUTICASONE PROPIONATE
     Indication: SINUS DISORDER
     Dosage: 1 DF, QD
     Route: 045
     Dates: start: 20181227
  18. HEPARIN [Concomitant]
     Active Substance: HEPARIN SODIUM
     Indication: VASCULAR DEVICE USER
     Dosage: 5 ML, QMO
     Route: 065
     Dates: start: 20130717
  19. NOVOLOG [Concomitant]
     Active Substance: INSULIN ASPART
     Indication: CYSTIC FIBROSIS RELATED DIABETES
     Dosage: 1 DF (4-5 TIMES), QD
     Route: 042
     Dates: start: 20180927
  20. LO LOESTRIN FE [Concomitant]
     Active Substance: ETHINYL ESTRADIOL\NORETHINDRONE ACETATE
     Indication: CONTRACEPTION
     Dosage: 1 DF, QD
     Route: 048
     Dates: start: 20181117, end: 20190331
  21. CREON [Concomitant]
     Active Substance: PANCRELIPASE AMYLASE\PANCRELIPASE LIPASE\PANCRELIPASE PROTEASE
     Indication: PANCREATIC FAILURE
     Dosage: 5 DF, TID AND 4 CAPS WITH SNACKS
     Route: 048
     Dates: start: 20180927
  22. MEPHYTON [Concomitant]
     Active Substance: PHYTONADIONE
     Indication: MALABSORPTION
     Dosage: 1 DF, QD
     Route: 048
     Dates: start: 20181227
  23. LAMPRENE [Suspect]
     Active Substance: CLOFAZIMINE
     Indication: MYCOBACTERIAL INFECTION
     Dosage: 100 MG, QD
     Route: 048
     Dates: start: 20181231
  24. AMIKACIN. [Concomitant]
     Active Substance: AMIKACIN
     Indication: MYCOBACTERIUM ABSCESSUS INFECTION
     Dosage: 900 MG, Q24H
     Route: 042
  25. ZITHROMAX [Concomitant]
     Active Substance: AZITHROMYCIN DIHYDRATE
     Indication: MYCOBACTERIUM ABSCESSUS INFECTION
     Dosage: 500 MG, TIW
     Route: 048
     Dates: start: 20180611
  26. VITAMIN D3 [Concomitant]
     Active Substance: CHOLECALCIFEROL
     Indication: MALABSORPTION
     Dosage: 6000 U, QD
     Route: 048
  27. AMIKACIN. [Concomitant]
     Active Substance: AMIKACIN
     Dosage: 1200 MG, Q24H
     Route: 042
  28. ADVAIR DISKUS [Concomitant]
     Active Substance: FLUTICASONE PROPIONATE\SALMETEROL XINAFOATE
     Indication: ASTHMA
     Dosage: 1 DF, BID
     Route: 055
     Dates: start: 20181024
  29. CULTURELLE [Concomitant]
     Active Substance: LACTOBACILLUS RHAMNOSUS
     Indication: PROPHYLAXIS AGAINST DIARRHOEA
     Dosage: 1 DF, QD
     Route: 048
     Dates: start: 20180919
  30. LEVAQUIN [Concomitant]
     Active Substance: LEVOFLOXACIN
     Indication: SINUS DISORDER
     Dosage: 1 DF, QD
     Route: 048
     Dates: start: 20181227
  31. NACL [Concomitant]
     Active Substance: SODIUM CHLORIDE
     Indication: CYSTIC FIBROSIS
     Dosage: 0.9 %, BID
     Route: 055
     Dates: start: 20180615
  32. NACL [Concomitant]
     Active Substance: SODIUM CHLORIDE
     Dosage: 3 %, BID
     Route: 055
     Dates: start: 20180927
  33. VITAMIN E [Concomitant]
     Active Substance: .ALPHA.-TOCOPHEROL
     Indication: MALABSORPTION
     Dosage: 1 DF, QD
     Route: 048
     Dates: start: 20180919
  34. AMIKACIN. [Suspect]
     Active Substance: AMIKACIN
     Indication: PRODUCT USED FOR UNKNOWN INDICATION
     Dosage: UNK
     Route: 055
  35. ALBUTEROL. [Concomitant]
     Active Substance: ALBUTEROL
     Indication: CYSTIC FIBROSIS
  36. AMIKACIN;SODIUM CHLORIDE [Concomitant]
     Indication: MYCOBACTERIUM ABSCESSUS INFECTION
     Dosage: 1 DF, QD (500 MG AMIKACIN IN SODIUM CHLORIDE 0.9 % 8 ML)
     Route: 065
     Dates: start: 20181126
  37. CHOLECALCIFEROL [Concomitant]
     Active Substance: CHOLECALCIFEROL
     Indication: MALABSORPTION
     Dosage: 6000 U, QD
     Route: 048
     Dates: start: 20180919

REACTIONS (51)
  - Fatigue [Unknown]
  - Parainfluenzae virus infection [Recovering/Resolving]
  - Eosinophil count increased [Unknown]
  - International normalised ratio increased [Unknown]
  - Staphylococcal infection [Unknown]
  - Cough [Unknown]
  - Abdominal distension [Unknown]
  - Bronchiectasis [Unknown]
  - Nasal mucosal disorder [Recovering/Resolving]
  - Infective pulmonary exacerbation of cystic fibrosis [Recovered/Resolved]
  - Pseudomonas infection [Unknown]
  - Infective pulmonary exacerbation of cystic fibrosis [Recovered/Resolved]
  - Sinus disorder [Recovered/Resolved]
  - Dyspnoea [Recovering/Resolving]
  - Gastroenteritis [Recovered/Resolved]
  - Nausea [Recovered/Resolved]
  - Contusion [Recovering/Resolving]
  - Increased bronchial secretion [Unknown]
  - Procedural pain [Recovered/Resolved]
  - Musculoskeletal chest pain [Unknown]
  - Condition aggravated [Recovered/Resolved]
  - Nasal discomfort [Recovering/Resolving]
  - Cough [Recovered/Resolved]
  - Paranasal sinus discomfort [Unknown]
  - Infective pulmonary exacerbation of cystic fibrosis [Recovered/Resolved]
  - Pyrexia [Recovering/Resolving]
  - Anxiety [Recovered/Resolved]
  - Hepatic enzyme increased [Recovered/Resolved]
  - Abdominal pain [Not Recovered/Not Resolved]
  - Insomnia [Recovered/Resolved]
  - Abdominal tenderness [Unknown]
  - Respiratory tract irritation [Unknown]
  - Sinusitis [Recovering/Resolving]
  - Body temperature increased [Not Recovered/Not Resolved]
  - Sinus headache [Recovered/Resolved]
  - Nausea [Unknown]
  - Prothrombin level increased [Unknown]
  - Diarrhoea [Recovered/Resolved]
  - Nasal congestion [Recovered/Resolved]
  - Parosmia [Recovered/Resolved]
  - Decreased appetite [Unknown]
  - Forced expiratory volume decreased [Recovering/Resolving]
  - Cholangiolitis [Unknown]
  - Cough [Recovering/Resolving]
  - Sputum increased [Recovering/Resolving]
  - Oropharyngeal pain [Recovering/Resolving]
  - Activated partial thromboplastin time prolonged [Unknown]
  - Depression [Recovered/Resolved]
  - Abdominal pain upper [Recovered/Resolved]
  - Nasal injury [Recovering/Resolving]
  - Sleep disorder [Unknown]

NARRATIVE: CASE EVENT DATE: 20190101
